FAERS Safety Report 4747569-5 (Version None)
Quarter: 2005Q3

REPORT INFORMATION
  Report Type: 
  Country: None (occurrence: None)
  Receive Date: 20050818
  Receipt Date: 20040915
  Transmission Date: 20060218
  Serious: Yes (Life-Threatening, Hospitalization)
  Sender: FDA-Public Use
  Company Number: US-BRISTOL-MYERS SQUIBB COMPANY-12701702

PATIENT
  Age: 44 Year
  Sex: Female

DRUGS (4)
  1. TEQUIN [Suspect]
     Indication: PNEUMONIA
     Route: 042
  2. IBUPROFEN [Concomitant]
  3. ENALAPRIL [Concomitant]
  4. HYDROCHLOROTHIAZIDE [Concomitant]

REACTIONS (1)
  - HYPOTENSION [None]
